FAERS Safety Report 6431408-0 (Version None)
Quarter: 2009Q4

REPORT INFORMATION
  Report Type: 
  Country: None (occurrence: None)
  Receive Date: 20091106
  Receipt Date: 20091028
  Transmission Date: 20100525
  Serious: Yes (Hospitalization, Other)
  Sender: FDA-Public Use
  Company Number: PHHY2009JP47075

PATIENT
  Age: 56 Year
  Sex: Male

DRUGS (2)
  1. CYCLOSPORINE [Suspect]
     Indication: PSORIATIC ARTHROPATHY
     Dosage: UNK
     Dates: start: 19990101
  2. PREDNISOLONE [Concomitant]
     Indication: PSORIATIC ARTHROPATHY
     Dosage: UNK
     Dates: start: 19990101, end: 20030101

REACTIONS (11)
  - ARTERIAL STENOSIS [None]
  - DUODENAL ULCER [None]
  - ERYTHRODERMIC PSORIASIS [None]
  - GASTROENTERITIS STAPHYLOCOCCAL [None]
  - PERICARDITIS [None]
  - PNEUMONIA [None]
  - RASH GENERALISED [None]
  - RENAL FAILURE CHRONIC [None]
  - SEPSIS [None]
  - SEPTIC SHOCK [None]
  - STAPHYLOCOCCAL SEPSIS [None]
